FAERS Safety Report 21947187 (Version 1)
Quarter: 2023Q1

REPORT INFORMATION
  Report Type: Spontaneous
  Country: CN (occurrence: CN)
  Receive Date: 20230202
  Receipt Date: 20230202
  Transmission Date: 20230417
  Serious: Yes (Hospitalization)
  Sender: FDA-Public Use
  Company Number: CN-002147023-NVSC2022CN140982

PATIENT
  Age: 49 Year
  Sex: Male
  Weight: 62 kg

DRUGS (2)
  1. IMATINIB MESYLATE [Suspect]
     Active Substance: IMATINIB MESYLATE
     Indication: Leukaemia
     Dosage: 0.4 G, QD
     Route: 048
     Dates: start: 20220501, end: 20220526
  2. HYDROXYUREA [Concomitant]
     Active Substance: HYDROXYUREA
     Indication: Leukaemia
     Dosage: 0.50 G, QID(BEIJING JIALIN PHARMACEUTICAL CO.,LTD)
     Route: 048
     Dates: start: 20220501, end: 20220530

REACTIONS (5)
  - Erythema of eyelid [Recovered/Resolved]
  - Swelling of eyelid [Recovered/Resolved]
  - Rash [Recovered/Resolved]
  - Pruritus [Recovered/Resolved]
  - Pyrexia [Recovered/Resolved]

NARRATIVE: CASE EVENT DATE: 20220526
